FAERS Safety Report 22779617 (Version 4)
Quarter: 2024Q4

REPORT INFORMATION
  Report Type: Spontaneous
  Country: JP (occurrence: JP)
  Receive Date: 20230802
  Receipt Date: 20241003
  Transmission Date: 20250114
  Serious: Yes (Other)
  Sender: SANOFI AVENTIS
  Company Number: JP-SAKK-2023SA233057AA

PATIENT
  Age: 79 Year
  Sex: Male

DRUGS (2)
  1. DUPIXENT [Suspect]
     Active Substance: DUPILUMAB
     Indication: Cutaneous T-cell lymphoma
     Dosage: UNK
     Route: 058
  2. PREDNISOLONE [Concomitant]
     Active Substance: PREDNISOLONE
     Indication: Cutaneous T-cell lymphoma
     Dosage: 20 MG, QD
     Route: 065

REACTIONS (7)
  - Cutaneous T-cell lymphoma stage IV [Recovered/Resolved]
  - Disease progression [Recovered/Resolved]
  - Dermatitis exfoliative generalised [Recovered/Resolved]
  - Acanthosis [Recovered/Resolved]
  - Leukocytosis [Recovered/Resolved]
  - Lymphadenopathy [Recovered/Resolved]
  - Off label use [Recovered/Resolved]
